FAERS Safety Report 20986689 (Version 2)
Quarter: 2022Q2

REPORT INFORMATION
  Report Type: Report from Study
  Country: US (occurrence: US)
  Receive Date: 20220621
  Receipt Date: 20220622
  Transmission Date: 20220721
  Serious: No
  Sender: FDA-Public Use
  Company Number: US-NOVARTISTESTPH-NVSC2022US141757

PATIENT
  Sex: Female

DRUGS (1)
  1. COSENTYX [Suspect]
     Active Substance: SECUKINUMAB
     Indication: Spondylitis
     Dosage: 150 MG, QMO
     Route: 058

REACTIONS (4)
  - Incorrect dose administered [Unknown]
  - Device mechanical issue [Unknown]
  - Needle issue [Unknown]
  - Product use in unapproved indication [Unknown]
